FAERS Safety Report 24150108 (Version 5)
Quarter: 2024Q4

REPORT INFORMATION
  Report Type: Spontaneous
  Country: US (occurrence: US)
  Receive Date: 20240730
  Receipt Date: 20241025
  Transmission Date: 20250114
  Serious: No
  Sender: BRISTOL-MYERS SQUIBB COMPANY
  Company Number: US-BRISTOL-MYERS SQUIBB COMPANY-2024-120203

PATIENT
  Age: 47 Year
  Sex: Female

DRUGS (2)
  1. SPRYCEL [Suspect]
     Active Substance: DASATINIB
     Indication: Chronic myeloid leukaemia
     Route: 048
     Dates: start: 202407
  2. SPRYCEL [Suspect]
     Active Substance: DASATINIB
     Route: 048
     Dates: start: 202407

REACTIONS (5)
  - Fatigue [Unknown]
  - Urinary tract infection [Unknown]
  - Diarrhoea [Unknown]
  - Loss of personal independence in daily activities [Unknown]
  - Nausea [Unknown]
